FAERS Safety Report 6252162-1 (Version None)
Quarter: 2009Q2

REPORT INFORMATION
  Report Type: 
  Country: None (occurrence: None)
  Receive Date: 20090630
  Receipt Date: 20070907
  Transmission Date: 20091009
  Serious: Yes (Hospitalization)
  Sender: FDA-Public Use
  Company Number: US-ROCHE-639699

PATIENT
  Sex: Female

DRUGS (18)
  1. ENFUVIRTIDE [Suspect]
     Route: 065
     Dates: start: 20050428
  2. ENFUVIRTIDE [Suspect]
     Route: 065
     Dates: start: 20060925, end: 20080101
  3. NORVIR [Concomitant]
     Dosage: FREQUENCY REPORTED AS QD
     Dates: start: 20040427, end: 20040604
  4. NORVIR [Concomitant]
     Dosage: FREQUENCY REPORTED AS QD
     Dates: start: 20040624, end: 20040714
  5. NORVIR [Concomitant]
     Dosage: FREQUENCY REPORTED AS QD
     Dates: start: 20040804, end: 20080310
  6. REYATAZ [Concomitant]
     Dosage: FREQUENCY REPORTED AS QD
     Dates: start: 20040427, end: 20040604
  7. REYATAZ [Concomitant]
     Dosage: FREQUENCY REPORTED AS QD
     Dates: start: 20040624, end: 20040714
  8. REYATAZ [Concomitant]
     Dosage: FREQUENCY REPORTED AS QD
     Dates: start: 20040724
  9. REYATAZ [Concomitant]
     Dosage: FREQUENCY REPORTED AS QD
     Dates: start: 20040804, end: 20080310
  10. VIDEX [Concomitant]
     Dosage: FREQUENCY REPORTED AS QD.  DRUG NAME REPORTED AS VIDEX EC
     Dates: start: 20040427, end: 20040604
  11. VIDEX [Concomitant]
     Dosage: FREQUENCY REPORTED AS QD
     Dates: start: 20040624, end: 20040714
  12. VIDEX [Concomitant]
     Dosage: FREQUENCY REPORTED AS QD
     Dates: start: 20040804, end: 20080310
  13. VIREAD [Concomitant]
     Dosage: FREQUENCY REPORTED AS QD
     Dates: start: 20040427, end: 20040604
  14. VIREAD [Concomitant]
     Dosage: FREQUENCY REPORTED AS QD
     Dates: start: 20040624, end: 20040714
  15. TRUVADA [Concomitant]
     Dosage: FREQUENCY REPORTED AS QD
     Dates: start: 20050428
  16. TRUVADA [Concomitant]
     Dates: end: 20050406
  17. LEXIVA [Concomitant]
     Dosage: FREQUENCY REPORTED AS QD. START DATE FOR THE DRUG REPORTEDAS AN UNSPECIFIED DATE INAPRIL 2005
     Dates: end: 20050406
  18. BACTRIM [Concomitant]
     Dosage: FREQUENCY REPORTED AS QD
     Dates: start: 20040112, end: 20080814

REACTIONS (8)
  - DIARRHOEA [None]
  - DYSPHAGIA [None]
  - NEUROPATHY PERIPHERAL [None]
  - NON-CARDIAC CHEST PAIN [None]
  - ODYNOPHAGIA [None]
  - OESOPHAGEAL STENOSIS [None]
  - PANCREATITIS ACUTE [None]
  - REFLUX LARYNGITIS [None]
